FAERS Safety Report 4286262-2 (Version None)
Quarter: 2004Q1

REPORT INFORMATION
  Report Type: 
  Country: None (occurrence: None)
  Receive Date: 20040205
  Receipt Date: 20040205
  Transmission Date: 20041129
  Serious: Yes (Hospitalization)
  Sender: FDA-Public Use
  Company Number: None

PATIENT
  Age: 66 Year
  Sex: Male
  Weight: 88.2 kg

DRUGS (16)
  1. AMLODIPINE [Suspect]
     Indication: HYPERTENSION
     Dosage: 10 MG QD
  2. NIFEDIPINE [Suspect]
     Indication: ATRIAL FIBRILLATION
  3. ALBUTEROL [Concomitant]
  4. ALLOPURINOL [Concomitant]
  5. CALECTIPAL [Concomitant]
  6. DIAZEPAM [Concomitant]
  7. TERAZOSIN HCL [Concomitant]
  8. FUROSEMIDE [Concomitant]
  9. GEMFIBROZIL [Concomitant]
  10. LORATADINE [Concomitant]
  11. METOPROLOL [Concomitant]
  12. MINOPHILE [Concomitant]
  13. PAROXETINE [Concomitant]
  14. WARFARIN SODIUM [Concomitant]
  15. RABEPRAZOLE SODIUM [Concomitant]
  16. KCL TAB [Concomitant]

REACTIONS (1)
  - HYPOTENSION [None]
